FAERS Safety Report 16526829 (Version 1)
Quarter: 2019Q3

REPORT INFORMATION
  Report Type: Spontaneous
  Country: JP (occurrence: JP)
  Receive Date: 20190703
  Receipt Date: 20190703
  Transmission Date: 20191004
  Serious: Yes (Hospitalization)
  Sender: FDA-Public Use
  Company Number: PHHY2019JP146274

PATIENT
  Age: 48 Year
  Sex: Female

DRUGS (1)
  1. LEUPRORELIN [Suspect]
     Active Substance: LEUPROLIDE ACETATE
     Indication: MENOPAUSE
     Route: 065

REACTIONS (8)
  - Chest pain [Recovering/Resolving]
  - Haematoma [Unknown]
  - Coronary artery dissection [Recovered/Resolved]
  - Prinzmetal angina [Unknown]
  - Nausea [Unknown]
  - Cold sweat [Unknown]
  - Product use in unapproved indication [Unknown]
  - Myocardial infarction [Unknown]
